FAERS Safety Report 17590091 (Version 2)
Quarter: 2020Q2

REPORT INFORMATION
  Report Type: Report from Study
  Country: JP (occurrence: JP)
  Receive Date: 20200327
  Receipt Date: 20200415
  Transmission Date: 20200713
  Serious: Yes (Death, Hospitalization, Other)
  Sender: FDA-Public Use
  Company Number: JP-ASTELLAS-2020JP005404

PATIENT
  Age: 68 Year
  Sex: Male
  Weight: 59 kg

DRUGS (5)
  1. CEFEPIME DIHYDROCHLORIDE [Concomitant]
     Active Substance: CEFEPIME HYDROCHLORIDE
     Indication: PNEUMONIA BACTERIAL
     Dosage: 4 G/DAY, UNKNOWN FREQ.
     Route: 042
     Dates: start: 20190313, end: 20190314
  2. HABEKACIN [ARBEKACIN SULFATE] [Concomitant]
     Indication: PNEUMONIA BACTERIAL
     Dosage: 200 G/DAY, UNKNOWN FREQ.
     Route: 065
     Dates: start: 20190315, end: 20190318
  3. ASP2215 [Suspect]
     Active Substance: GILTERITINIB
     Route: 048
     Dates: start: 20190307, end: 20190403
  4. ASP2215 [Suspect]
     Active Substance: GILTERITINIB
     Indication: ACUTE MYELOID LEUKAEMIA REFRACTORY
     Route: 048
     Dates: start: 20190301, end: 20190306
  5. MEROPENEM. [Concomitant]
     Active Substance: MEROPENEM
     Indication: PNEUMONIA BACTERIAL
     Dosage: 2 G/DAY, UNKNOWN FREQ.
     Route: 042
     Dates: start: 20190315, end: 20190318

REACTIONS (2)
  - Pneumonia bacterial [Recovered/Resolved]
  - Neurogenic bladder [Not Recovered/Not Resolved]

NARRATIVE: CASE EVENT DATE: 20190313
